FAERS Safety Report 7984222-9 (Version None)
Quarter: 2011Q4

REPORT INFORMATION
  Report Type: 
  Country: None (occurrence: None)
  Receive Date: 20111214
  Receipt Date: 20111130
  Transmission Date: 20120403
  Serious: Yes (Death)
  Sender: FDA-Public Use
  Company Number: UTC-012972

PATIENT
  Age: 66 Year
  Sex: Female
  Weight: 84.5 kg

DRUGS (2)
  1. TYVASO [Suspect]
     Indication: PULMONARY ARTERIAL HYPERTENSION
     Dosage: 96 MCG (24 MCG,4 IN 1 D), INHALATION
     Route: 055
     Dates: start: 20110823
  2. TRACLEER [Concomitant]

REACTIONS (1)
  - DEATH [None]
